FAERS Safety Report 4560322-0 (Version None)
Quarter: 2005Q1

REPORT INFORMATION
  Report Type: 
  Country: None (occurrence: None)
  Receive Date: 20050119
  Receipt Date: 20050119
  Transmission Date: 20050727
  Serious: Yes (Death, Life-Threatening)
  Sender: FDA-Public Use
  Company Number: None

PATIENT
  Age: 69 Year
  Sex: Male
  Weight: 53 kg

DRUGS (1)
  1. CISPLATIN [Suspect]
     Indication: THROAT CANCER
     Dosage: 150 MG X1

REACTIONS (2)
  - DIALYSIS [None]
  - RENAL FAILURE ACUTE [None]
